FAERS Safety Report 10877383 (Version 1)
Quarter: 2015Q1

REPORT INFORMATION
  Report Type: Spontaneous
  Country: US (occurrence: US)
  Receive Date: 20150302
  Receipt Date: 20150302
  Transmission Date: 20150721
  Serious: Yes (Life-Threatening, Disabling)
  Sender: FDA-Public Use
  Company Number: US-BAYER-2015-028083

PATIENT
  Sex: Female

DRUGS (3)
  1. YAZ [Suspect]
     Active Substance: DROSPIRENONE\ETHINYL ESTRADIOL
     Route: 048
  2. YASMIN [Suspect]
     Active Substance: DROSPIRENONE\ETHINYL ESTRADIOL
     Route: 048
  3. OCELLA [Suspect]
     Active Substance: DROSPIRENONE\ETHINYL ESTRADIOL
     Route: 048

REACTIONS (10)
  - Peripheral venous disease [None]
  - Emotional distress [None]
  - Anhedonia [None]
  - Deep vein thrombosis [None]
  - Varicose vein [None]
  - Scar [None]
  - Injury [None]
  - General physical health deterioration [None]
  - Pain [None]
  - Anxiety [None]
